FAERS Safety Report 7366877-5 (Version None)
Quarter: 2011Q1

REPORT INFORMATION
  Report Type: 
  Country: None (occurrence: None)
  Receive Date: 20110322
  Receipt Date: 20110317
  Transmission Date: 20110831
  Serious: Yes (Death, Hospitalization, Other)
  Sender: FDA-Public Use
  Company Number: A0909376A

PATIENT
  Age: 68 Year
  Sex: Female

DRUGS (9)
  1. PROMACTA [Suspect]
     Indication: IDIOPATHIC THROMBOCYTOPENIC PURPURA
     Route: 048
     Dates: start: 20090820, end: 20110114
  2. BENICAR HCT [Concomitant]
  3. CORTICOSTEROIDS [Concomitant]
     Indication: IDIOPATHIC THROMBOCYTOPENIC PURPURA
  4. ALLEGRA [Concomitant]
     Dosage: 60MG TWICE PER DAY
  5. LOVAZA [Concomitant]
     Dosage: 2CAP TWICE PER DAY
  6. RITUXIMAB [Concomitant]
     Indication: IDIOPATHIC THROMBOCYTOPENIC PURPURA
  7. IMMUNE GLOBULIN INTRAVENOUS (HUMAN) [Concomitant]
     Indication: IDIOPATHIC THROMBOCYTOPENIC PURPURA
  8. ADVAIR DISKUS 100/50 [Concomitant]
     Dosage: 1PUFF TWICE PER DAY
  9. CALCIUM WITH VITAMIN D [Concomitant]
     Dosage: 600MG PER DAY

REACTIONS (3)
  - HEPATIC ENZYME INCREASED [None]
  - DEATH [None]
  - HEPATIC FAILURE [None]
